FAERS Safety Report 11840755 (Version 2)
Quarter: 2016Q1

REPORT INFORMATION
  Report Type: Spontaneous
  Country: CA (occurrence: CA)
  Receive Date: 20151216
  Receipt Date: 20160125
  Transmission Date: 20160525
  Serious: No
  Sender: FDA-Public Use
  Company Number: CA-BAXTER-2015BAX066805

PATIENT
  Age: 5 Day
  Sex: Male
  Weight: 1.5 kg

DRUGS (3)
  1. PRIMENE 10% [Suspect]
     Active Substance: AMINO ACIDS
     Indication: NUTRITIONAL SUPPLEMENTATION
     Dosage: 3.5 G/KG/DAY AMINO ACIDS
     Route: 042
     Dates: start: 20151203, end: 20151206
  2. DEXTROSE 10% INJECTION 10 MG [Suspect]
     Active Substance: DEXTROSE
     Indication: NUTRITIONAL SUPPLEMENTATION
     Route: 042
     Dates: start: 20151203, end: 20151206
  3. CAFFEINE. [Concomitant]
     Active Substance: CAFFEINE
     Indication: INFANTILE APNOEA
     Route: 048
     Dates: start: 20151203

REACTIONS (2)
  - Infusion site rash [Recovered/Resolved]
  - Rash pustular [Recovered/Resolved]

NARRATIVE: CASE EVENT DATE: 201512
